FAERS Safety Report 18555308 (Version 1)
Quarter: 2020Q4

REPORT INFORMATION
  Report Type: Spontaneous
  Country: TH (occurrence: TH)
  Receive Date: 20201127
  Receipt Date: 20201127
  Transmission Date: 20210114
  Serious: Yes (Other)
  Sender: FDA-Public Use
  Company Number: NVSC2020TH310866

PATIENT
  Age: 73 Year
  Sex: Female

DRUGS (2)
  1. TAMOXIFEN [Suspect]
     Active Substance: TAMOXIFEN
     Indication: BREAST CANCER STAGE I
     Dosage: UNK
     Route: 065
     Dates: start: 20180711
  2. DOCETAXEL. [Suspect]
     Active Substance: DOCETAXEL
     Indication: BREAST CANCER STAGE I
     Dosage: 6 CYCLE
     Route: 065

REACTIONS (4)
  - Metastases to lymph nodes [Unknown]
  - Symptom recurrence [Unknown]
  - Metastases to central nervous system [Unknown]
  - Metastases to lung [Unknown]

NARRATIVE: CASE EVENT DATE: 201909
